FAERS Safety Report 6021454-3 (Version None)
Quarter: 2008Q4

REPORT INFORMATION
  Report Type: 
  Country: None (occurrence: None)
  Receive Date: 20081229
  Receipt Date: 20081217
  Transmission Date: 20090506
  Serious: Yes (Hospitalization)
  Sender: FDA-Public Use
  Company Number: AU-AVENTIS-200821164GDDC

PATIENT
  Age: 69 Year
  Sex: Female

DRUGS (2)
  1. ARAVA [Suspect]
     Route: 048
     Dates: start: 20080801
  2. METHOTREXATE [Concomitant]
     Dosage: DOSE: UNK
     Route: 051

REACTIONS (5)
  - DIARRHOEA [None]
  - DIVERTICULITIS [None]
  - EPISTAXIS [None]
  - RECTAL HAEMORRHAGE [None]
  - THROMBOCYTOPENIA [None]
